FAERS Safety Report 7967531-9 (Version None)
Quarter: 2011Q4

REPORT INFORMATION
  Report Type: 
  Country: None (occurrence: None)
  Receive Date: 20111209
  Receipt Date: 20111201
  Transmission Date: 20120403
  Serious: Yes (Hospitalization)
  Sender: FDA-Public Use
  Company Number: CA-UCBSA-045365

PATIENT
  Age: 66 Year
  Sex: Female
  Weight: 61.36 kg

DRUGS (4)
  1. CIMZIA [Suspect]
     Indication: RHEUMATOID ARTHRITIS
     Route: 058
     Dates: start: 20110905, end: 20110101
  2. PREDNISONE TAB [Concomitant]
     Indication: RHEUMATOID ARTHRITIS
     Route: 048
     Dates: start: 20100101
  3. CIMZIA [Suspect]
     Dosage: WKS 0-2-4
     Route: 058
     Dates: start: 20110725, end: 20110822
  4. PREDNISONE TAB [Concomitant]
     Route: 048
     Dates: start: 20060601

REACTIONS (5)
  - RASH [None]
  - VOMITING [None]
  - DYSPNOEA [None]
  - NAUSEA [None]
  - TUBERCULOSIS [None]
